FAERS Safety Report 24867292 (Version 1)
Quarter: 2025Q1

REPORT INFORMATION
  Report Type: Spontaneous
  Country: US (occurrence: US)
  Receive Date: 20250121
  Receipt Date: 20250121
  Transmission Date: 20250409
  Serious: No
  Sender: PERRIGO
  Company Number: US-PERRIGO-24US006347

PATIENT
  Age: 61 Year
  Sex: Female
  Weight: 8.163 kg

DRUGS (2)
  1. NICOTINE POLACRILEX [Suspect]
     Active Substance: NICOTINE
     Indication: Smoking cessation therapy
     Route: 002
     Dates: start: 20240613, end: 20240613
  2. NICOTINE POLACRILEX [Suspect]
     Active Substance: NICOTINE
     Route: 002
     Dates: start: 20240613, end: 20240613

REACTIONS (2)
  - Drug ineffective [Unknown]
  - Incorrect dose administered [Unknown]

NARRATIVE: CASE EVENT DATE: 20240613
